FAERS Safety Report 12886692 (Version 2)
Quarter: 2020Q2

REPORT INFORMATION
  Report Type: Spontaneous
  Country: US (occurrence: US)
  Receive Date: 20161026
  Receipt Date: 20200521
  Transmission Date: 20200713
  Serious: Yes (Other)
  Sender: FDA-Public Use
  Company Number: US-TEVA-707280USA

PATIENT
  Sex: Female

DRUGS (2)
  1. TYSABRI [Concomitant]
     Active Substance: NATALIZUMAB
  2. COPAXONE [Suspect]
     Active Substance: GLATIRAMER ACETATE
     Indication: MULTIPLE SCLEROSIS
     Dosage: UNKNOWN FORM STRENGTH
     Route: 065

REACTIONS (7)
  - Amnesia [Unknown]
  - Sleep disorder [Unknown]
  - Gait disturbance [Unknown]
  - JC polyomavirus test positive [Unknown]
  - Feeling drunk [Unknown]
  - Neuropathy peripheral [Unknown]
  - Burning sensation [Unknown]
